FAERS Safety Report 18195675 (Version 2)
Quarter: 2020Q4

REPORT INFORMATION
  Report Type: Spontaneous
  Country: AT (occurrence: AT)
  Receive Date: 20200826
  Receipt Date: 20201023
  Transmission Date: 20210113
  Serious: Yes (Other)
  Sender: FDA-Public Use
  Company Number: AT-SUN PHARMACEUTICAL INDUSTRIES LTD-2020RR-258739

PATIENT
  Age: 56 Year
  Sex: Male
  Weight: 73 kg

DRUGS (6)
  1. ROSUVASTATIN 10 MG [Concomitant]
     Active Substance: ROSUVASTATIN
     Indication: PRODUCT USED FOR UNKNOWN INDICATION
     Dosage: 0-0-1
     Route: 065
  2. DOXYCYCLIN 200 M [Concomitant]
     Indication: HELICOBACTER GASTRITIS
     Dosage: 1-0-0, 27.7 (8:00) - 29.7.(8:00)
     Route: 065
     Dates: start: 20200727, end: 20200729
  3. ESOMEPRAZOLE. [Suspect]
     Active Substance: ESOMEPRAZOLE MAGNESIUM
     Indication: HELICOBACTER GASTRITIS
     Dosage: 1-0-1, 27.7 (8:00) - 29.7.(8:00)
     Route: 065
     Dates: start: 20200727, end: 20200729
  4. LEVOFLOXACIN 500 MG [Concomitant]
     Active Substance: LEVOFLOXACIN
     Indication: HELICOBACTER GASTRITIS
     Dosage: 1-0-0, 27.7 (8:00) - 29.7.(8:00)
     Route: 065
     Dates: start: 20200727, end: 20200729
  5. MOXILAN 100 MG [Concomitant]
     Indication: HELICOBACTER GASTRITIS
     Dosage: 1-1-1, 27.7 (8:00) - 29.7.(14:00)
     Route: 065
     Dates: start: 20200727, end: 20200729
  6. CANDAM 16 MG/5 MG [Concomitant]
     Indication: PRODUCT USED FOR UNKNOWN INDICATION
     Dosage: 0-0-1
     Route: 065

REACTIONS (6)
  - Skin weeping [Recovering/Resolving]
  - Stevens-Johnson syndrome [Recovering/Resolving]
  - Blister [Recovering/Resolving]
  - Balanoposthitis [Recovering/Resolving]
  - Penile oedema [Recovering/Resolving]
  - Skin exfoliation [Recovering/Resolving]

NARRATIVE: CASE EVENT DATE: 20200727
